FAERS Safety Report 11047267 (Version 3)
Quarter: 2015Q2

REPORT INFORMATION
  Report Type: Other
  Country: GB (occurrence: GB)
  Receive Date: 20150420
  Receipt Date: 20150519
  Transmission Date: 20150821
  Serious: Yes (Hospitalization, Other)
  Sender: FDA-Public Use
  Company Number: GB-APOTEX-2015AP008076

PATIENT
  Age: 75 Year
  Sex: Female

DRUGS (7)
  1. EPREX [Concomitant]
     Active Substance: ERYTHROPOIETIN
     Indication: MYELODYSPLASTIC SYNDROME
     Route: 065
  2. LATANOPROST. [Suspect]
     Active Substance: LATANOPROST
     Indication: GLAUCOMA
     Route: 065
  3. CELLUVISC                          /00007002/ [Concomitant]
     Indication: EYE PAIN
     Dosage: UNK
     Route: 065
     Dates: start: 2013
  4. VENTOLIN [Concomitant]
     Active Substance: ALBUTEROL SULFATE
     Indication: PRODUCT USED FOR UNKNOWN INDICATION
     Dosage: 2 DF, PRN
     Route: 055
  5. CELLUVISC                          /00007002/ [Concomitant]
     Indication: EYE IRRITATION
  6. HYLO-FORTE [Concomitant]
     Indication: EYE PAIN
     Dosage: UNK, QID
     Route: 065
     Dates: start: 2013
  7. XALATAN [Suspect]
     Active Substance: LATANOPROST
     Indication: GLAUCOMA
     Dosage: 1 GTT, BID
     Route: 065
     Dates: start: 200706, end: 201309

REACTIONS (11)
  - Eye irritation [Not Recovered/Not Resolved]
  - Neck injury [Recovered/Resolved]
  - Visual impairment [Not Recovered/Not Resolved]
  - Eye pain [Not Recovered/Not Resolved]
  - Product formulation issue [Unknown]
  - Blindness [Not Recovered/Not Resolved]
  - Eye infection [Not Recovered/Not Resolved]
  - Eye swelling [Not Recovered/Not Resolved]
  - Chest discomfort [Unknown]
  - Eye disorder [Not Recovered/Not Resolved]
  - Vision blurred [Not Recovered/Not Resolved]

NARRATIVE: CASE EVENT DATE: 2012
